FAERS Safety Report 4732239-X (Version None)
Quarter: 2005Q3

REPORT INFORMATION
  Report Type: 
  Country: None (occurrence: None)
  Receive Date: 20050725
  Receipt Date: 20040720
  Transmission Date: 20060218
  Serious: Yes (Death, Other)
  Sender: FDA-Public Use
  Company Number: USA-2004-0016082

PATIENT
  Age: 40 Year
  Sex: Female
  Weight: 77.1 kg

DRUGS (14)
  1. MORPHINE SULFATE [Suspect]
  2. TEMAZEPAM [Suspect]
     Indication: SOMNOLENCE
     Dosage: 15 MG
  3. ALPRAZOLAM [Suspect]
     Dosage: 0 MG
  4. THIORIDAZINE HCL [Suspect]
     Dosage: 0 MG
  5. TRAZODONE (TRAZODONE) [Suspect]
  6. CAFFEINE (CAFFEINE) [Suspect]
  7. NICOTINE [Suspect]
  8. DOXYLAMINE (DOXYLAMINE) [Suspect]
  9. CANNABINOIDS [Suspect]
  10. DIAZEPAM [Suspect]
  11. NAPROXEN [Suspect]
  12. DEXTROMETHORPHAN HYDROBROMIDE [Suspect]
  13. CITALOPRAM (CITALOPRAM) [Suspect]
  14. ANTIDEPRESSANTS [Concomitant]

REACTIONS (2)
  - ACCIDENTAL OVERDOSE [None]
  - DRUG ABUSER [None]
